FAERS Safety Report 4479305-4 (Version None)
Quarter: 2004Q4

REPORT INFORMATION
  Report Type: 
  Country: None (occurrence: None)
  Receive Date: 20041015
  Receipt Date: 20041001
  Transmission Date: 20050328
  Serious: Yes (Hospitalization)
  Sender: FDA-Public Use
  Company Number: 2004237194FR

PATIENT
  Age: 31 Year
  Sex: Female

DRUGS (9)
  1. FARMORUBICIN          (EPIRUBICIN HYDROCHLORIDE) [Suspect]
     Indication: BREAST CANCER
     Dosage: 135 MG, CYCLIC, IV
     Route: 042
     Dates: start: 20040510, end: 20040519
  2. CYCLOPHOSPHAMIDE [Suspect]
     Indication: BREAST CANCER
     Dosage: 880 MG, CYCLIC, IV
     Route: 042
     Dates: start: 20040510, end: 20040519
  3. FLUOROURACIL [Suspect]
     Indication: BREAST CANCER
     Dosage: 880 MG, CYCLIC, IV
     Route: 042
     Dates: start: 20040510, end: 20040519
  4. DESLORATADINE     (DESLORATADINE) [Suspect]
     Indication: COUGH
     Dosage: ORAL
     Route: 048
     Dates: start: 20040517, end: 20040524
  5. ACODIN INFANTIL JARABE             (CODEINE) SYRUP [Suspect]
     Indication: COUGH
     Dosage: ORAL
     Route: 048
     Dates: start: 20040517, end: 20040524
  6. ONDANSETRON HYDROCHLORIDE [Suspect]
     Dosage: 8 MG
     Dates: start: 20040511
  7. ACETAMINOPHEN [Suspect]
     Indication: PYREXIA
     Dosage: 500 MG, ORAL
     Route: 048
     Dates: start: 20040519
  8. SOLU-MEDROL [Concomitant]
  9. SOLUPRED (PREDNISOLONE SODIUM SULFOBENZOATE) [Concomitant]

REACTIONS (4)
  - CYTOLYTIC HEPATITIS [None]
  - LABORATORY TEST INTERFERENCE [None]
  - NEUTROPENIA [None]
  - PROTHROMBIN TIME RATIO ABNORMAL [None]
